FAERS Safety Report 6251794-4 (Version None)
Quarter: 2009Q2

REPORT INFORMATION
  Report Type: 
  Country: None (occurrence: None)
  Receive Date: 20090630
  Receipt Date: 20090619
  Transmission Date: 20091009
  Serious: Yes (Death, Other)
  Sender: FDA-Public Use
  Company Number: US-PFIZER INC-2009233719

PATIENT

DRUGS (3)
  1. GEODON [Suspect]
  2. SEROQUEL [Concomitant]
  3. EFFEXOR [Concomitant]

REACTIONS (1)
  - DEATH [None]
